FAERS Safety Report 19106981 (Version 2)
Quarter: 2021Q2

REPORT INFORMATION
  Report Type: Spontaneous
  Country: JP (occurrence: JP)
  Receive Date: 20210408
  Receipt Date: 20210430
  Transmission Date: 20210717
  Serious: Yes (Other)
  Sender: FDA-Public Use
  Company Number: JP-PFIZER INC-2021352470

PATIENT
  Age: 68 Year
  Sex: Male
  Weight: 62 kg

DRUGS (6)
  1. ACONINSAN [Concomitant]
     Indication: PAIN
     Dosage: 3 DF, 2X/DAY
     Route: 048
     Dates: start: 20170128, end: 20170321
  2. LYRICA [Suspect]
     Active Substance: PREGABALIN
     Dosage: 50 MG, 1X/DAY (BEFORE BEDTIME)
     Route: 048
     Dates: start: 20151114, end: 20151225
  3. LYRICA [Suspect]
     Active Substance: PREGABALIN
     Dosage: 100 MG, DAILY (25 MG AFTER LUNCH AND 75 MG BEFORE BEDTIME)
     Route: 048
     Dates: start: 20151226, end: 20160209
  4. ACONINSAN [Concomitant]
     Dosage: 3 DF, 2X/DAY
     Route: 048
     Dates: start: 20170701
  5. LYRICA [Suspect]
     Active Substance: PREGABALIN
     Indication: NEURALGIA
     Dosage: 75 MG, 1X/DAY (BEFORE BEDTIME)
     Route: 048
     Dates: start: 20151003, end: 20151113
  6. LYRICA [Suspect]
     Active Substance: PREGABALIN
     Dosage: 75 MG, 1X/DAY (BEFORE BEDTIME)
     Route: 048
     Dates: start: 20160210, end: 2021

REACTIONS (1)
  - Platelet count decreased [Unknown]

NARRATIVE: CASE EVENT DATE: 20210331
